FAERS Safety Report 7833235-6 (Version None)
Quarter: 2011Q4

REPORT INFORMATION
  Report Type: 
  Country: None (occurrence: None)
  Receive Date: 20111024
  Receipt Date: 20111019
  Transmission Date: 20120403
  Serious: Yes (Other)
  Sender: FDA-Public Use
  Company Number: DK-PFIZER INC-2011252014

PATIENT
  Age: 63 Year
  Sex: Male

DRUGS (5)
  1. ENALAPRIL MALEATE [Concomitant]
     Indication: HYPERTENSION
     Route: 048
     Dates: start: 19500101
  2. ACETYLSALICYLIC ACID/MAGNESIUM OXIDE [Concomitant]
     Indication: ARTERIOSCLEROSIS
     Route: 048
     Dates: start: 19500101
  3. CRESTOR [Suspect]
     Indication: HYPERLIPIDAEMIA
     Dosage: 5 MG, 1X/DAY
     Route: 048
     Dates: end: 20110908
  4. LOPID [Suspect]
     Indication: HYPERLIPIDAEMIA
     Dosage: 600 MG, 1X/DAY
     Route: 048
     Dates: end: 20110908
  5. METFORMIN HCL [Concomitant]
     Indication: TYPE 2 DIABETES MELLITUS
     Route: 048
     Dates: start: 19500101

REACTIONS (1)
  - HEPATITIS [None]
